FAERS Safety Report 17052758 (Version 1)
Quarter: 2019Q4

REPORT INFORMATION
  Report Type: Report from Study
  Country: JP (occurrence: JP)
  Receive Date: 20191120
  Receipt Date: 20191120
  Transmission Date: 20200122
  Serious: Yes (Other)
  Sender: FDA-Public Use
  Company Number: JP-PFIZER INC-2019489559

PATIENT
  Age: 60 Year
  Sex: Male
  Weight: 68 kg

DRUGS (25)
  1. SAMSCA [Suspect]
     Active Substance: TOLVAPTAN
     Dosage: 60 MG, DAILY(DIVIDED 2 DOSES)
     Route: 048
     Dates: start: 20150916, end: 20151110
  2. ZOLPIDEM [Concomitant]
     Active Substance: ZOLPIDEM TARTRATE
     Dosage: UNK
     Dates: start: 20180430, end: 20181118
  3. SAMSCA [Suspect]
     Active Substance: TOLVAPTAN
     Dosage: 45 MG, DAILY(DIVIDED 2 DOSES)
     Route: 048
     Dates: start: 20150915, end: 20150915
  4. SAMSCA [Suspect]
     Active Substance: TOLVAPTAN
     Dosage: 30 MG, 1X/DAY
     Route: 048
     Dates: start: 20180228, end: 20180330
  5. LUNESTA [Concomitant]
     Active Substance: ESZOPICLONE
     Dosage: UNK
     Dates: start: 20160621
  6. MOSAPRIDE [Concomitant]
     Active Substance: MOSAPRIDE
     Indication: GASTROENTERITIS VIRAL
     Dosage: 15 MG, DAILY
     Dates: end: 20180428
  7. FUROSEMIDE. [Concomitant]
     Active Substance: FUROSEMIDE
     Dosage: UNK
     Dates: start: 20180131, end: 20180520
  8. CLOSTRIDIUM BUTYRICUM [Concomitant]
     Active Substance: CLOSTRIDIUM BUTYRICUM SPORES STRAIN M-55
     Dosage: UNK
     Dates: end: 20181118
  9. LOPERAMIDE HYDROCHLORIDE. [Concomitant]
     Active Substance: LOPERAMIDE HYDROCHLORIDE
     Dosage: UNK
     Dates: end: 20181118
  10. LATANOPROST. [Concomitant]
     Active Substance: LATANOPROST
     Dosage: UNK
     Dates: end: 20181118
  11. LYRICA [Suspect]
     Active Substance: PREGABALIN
     Indication: PAIN
     Dosage: 50 MG, 1X/DAY
     Route: 048
     Dates: start: 20180414, end: 20181118
  12. SAMSCA [Suspect]
     Active Substance: TOLVAPTAN
     Dosage: 30 MG, DAILY(DIVIDED 2 DOSES)
     Route: 048
     Dates: start: 20150914, end: 20150914
  13. SAMSCA [Suspect]
     Active Substance: TOLVAPTAN
     Dosage: 30 MG, 1X/DAY
     Route: 048
     Dates: start: 20151209, end: 20170124
  14. SAMSCA [Suspect]
     Active Substance: TOLVAPTAN
     Dosage: 45 MG, DAILY(DIVIDED 2 DOSES)
     Route: 048
     Dates: start: 20170125, end: 20170404
  15. TRAMCET [Concomitant]
     Active Substance: ACETAMINOPHEN\TRAMADOL
     Dosage: UNK
     Dates: end: 20180413
  16. FEBURIC [Concomitant]
     Active Substance: FEBUXOSTAT
     Dosage: 160 MG, DAILY
     Dates: start: 20180521
  17. SAMSCA [Suspect]
     Active Substance: TOLVAPTAN
     Dosage: 15 MG, 1X/DAY
     Route: 048
     Dates: start: 20151111, end: 20151208
  18. SAMSCA [Suspect]
     Active Substance: TOLVAPTAN
     Dosage: 15 MG, 1X/DAY
     Route: 048
     Dates: start: 20180207, end: 20180227
  19. SAMSCA [Suspect]
     Active Substance: TOLVAPTAN
     Indication: CONGENITAL CYSTIC KIDNEY DISEASE
     Dosage: 45 MG, UNK(DIVIDED 2 DOSES)
     Route: 048
     Dates: start: 20180331, end: 20180626
  20. PLETAAL [Concomitant]
     Active Substance: CILOSTAZOL
     Indication: LACUNAR INFARCTION
     Dosage: 100 MG, DAILY
     Route: 048
     Dates: end: 20181118
  21. SAMSCA [Suspect]
     Active Substance: TOLVAPTAN
     Dosage: 60 MG, DAILY(DIVIDED 2 DOSES)
     Route: 048
     Dates: start: 20170405, end: 20180109
  22. SAMSCA [Suspect]
     Active Substance: TOLVAPTAN
     Dosage: 60 MG, UNK(DIVIDED 2 DOSES)
     Route: 048
     Dates: start: 20180627, end: 20181118
  23. FEBURIC [Concomitant]
     Active Substance: FEBUXOSTAT
     Dosage: 160 MG, DAILY
     Route: 048
     Dates: start: 20170627, end: 20181118
  24. FUROSEMIDE. [Concomitant]
     Active Substance: FUROSEMIDE
     Dosage: UNK
     Dates: end: 20181118
  25. SOLACET D [Concomitant]
     Indication: INTRAOCULAR PRESSURE INCREASED
     Dosage: 1500 ML, DAILY
     Route: 042
     Dates: end: 20180501

REACTIONS (1)
  - Altered state of consciousness [Recovering/Resolving]

NARRATIVE: CASE EVENT DATE: 20181118
